FAERS Safety Report 9323579 (Version 1)
Quarter: 2013Q2

REPORT INFORMATION
  Report Type: Spontaneous
  Country: US (occurrence: US)
  Receive Date: 20130603
  Receipt Date: 20130603
  Transmission Date: 20140414
  Serious: No
  Sender: FDA-Public Use
  Company Number: US-B.I. PHARMACEUTICALS,INC./RIDGEFIELD-2013-BI-15376BP

PATIENT
  Age: 67 Year
  Sex: Male
  Weight: 95 kg

DRUGS (14)
  1. SPIRIVA [Suspect]
     Indication: CHRONIC OBSTRUCTIVE PULMONARY DISEASE
     Dosage: 18 MCG
     Route: 055
     Dates: start: 2011
  2. BUMETANIDE [Concomitant]
     Dosage: 1 MG
     Route: 048
  3. DILTIAZEM [Concomitant]
     Indication: CARDIAC DISORDER
     Dosage: 240 MG
     Route: 048
  4. METFORMIN [Concomitant]
     Indication: DIABETES MELLITUS
     Dosage: 1500 MG
     Route: 048
  5. FUROSEMIDE [Concomitant]
     Dosage: 80 MG
     Route: 048
  6. PREDNISONE [Concomitant]
     Dosage: 10 MG
     Route: 048
  7. GABAPENTIN [Concomitant]
     Dosage: 1800 MG
     Route: 048
  8. POTASSIUM [Concomitant]
     Dosage: 20 MG
     Route: 048
  9. THEOPHYLLINE [Concomitant]
     Dosage: 200 MG
     Route: 048
  10. TRAMADOL [Concomitant]
     Indication: PAIN
     Dosage: 200 MG
     Route: 048
  11. ADVAIR [Concomitant]
     Dosage: STRENGTH: 500 MCG / 50MCG; DAILY DOSE: 500 MCG / 50 MCG
     Route: 055
  12. ASPIRIN [Concomitant]
     Dosage: 325 MG
     Route: 048
  13. PLAVIX [Concomitant]
     Dosage: 75 MG
     Route: 048
  14. SIMVASTATIN [Concomitant]
     Indication: BLOOD CHOLESTEROL INCREASED
     Dosage: 20 MG
     Route: 048

REACTIONS (2)
  - Cardiac disorder [Recovered/Resolved]
  - Incorrect route of drug administration [Recovered/Resolved]
